FAERS Safety Report 20562429 (Version 1)
Quarter: 2022Q1

REPORT INFORMATION
  Report Type: Spontaneous
  Country: JP (occurrence: JP)
  Receive Date: 20220307
  Receipt Date: 20220307
  Transmission Date: 20220423
  Serious: Yes (Other)
  Sender: FDA-Public Use
  Company Number: JP-OTSUKA-2022_010209AA

PATIENT
  Sex: Male

DRUGS (2)
  1. REXULTI [Suspect]
     Active Substance: BREXPIPRAZOLE
     Indication: Product used for unknown indication
     Dosage: 2MG DAILY AT NIGHT BEFORE BEDTIME
     Route: 048
  2. REXULTI [Suspect]
     Active Substance: BREXPIPRAZOLE
     Dosage: UNK
     Route: 048

REACTIONS (5)
  - Cardiac dysfunction [Unknown]
  - Lung disorder [Unknown]
  - Dyspnoea [Unknown]
  - Muscle twitching [Unknown]
  - Headache [Unknown]
